FAERS Safety Report 21249011 (Version 2)
Quarter: 2022Q3

REPORT INFORMATION
  Report Type: Spontaneous
  Country: US (occurrence: US)
  Receive Date: 20220824
  Receipt Date: 20220930
  Transmission Date: 20221027
  Serious: Yes (Other)
  Sender: FDA-Public Use
  Company Number: US-PFIZER INC-PV202200048226

PATIENT
  Age: 49 Year
  Sex: Female

DRUGS (1)
  1. XELJANZ XR [Suspect]
     Active Substance: TOFACITINIB CITRATE
     Indication: Rheumatoid arthritis
     Dosage: 11 MG, 1X/DAY
     Route: 048
     Dates: start: 20220812

REACTIONS (9)
  - Cataract [Unknown]
  - Hepatomegaly [Unknown]
  - Drug ineffective [Unknown]
  - Vision blurred [Unknown]
  - Ear pain [Not Recovered/Not Resolved]
  - Muscle spasms [Unknown]
  - Malaise [Unknown]
  - Pain in extremity [Not Recovered/Not Resolved]
  - Arthralgia [Not Recovered/Not Resolved]
